FAERS Safety Report 6819125-6 (Version None)
Quarter: 2010Q3

REPORT INFORMATION
  Report Type: 
  Country: None (occurrence: None)
  Receive Date: 20100707
  Receipt Date: 20100701
  Transmission Date: 20110219
  Serious: Yes (Life-Threatening, Hospitalization, Other)
  Sender: FDA-Public Use
  Company Number: JP-JNJFOC-20100406675

PATIENT
  Sex: Female
  Weight: 41 kg

DRUGS (16)
  1. RISPERDAL CONSTA [Suspect]
     Indication: DELUSION
     Route: 030
  2. RISPERDAL CONSTA [Suspect]
     Route: 030
  3. RISPERDAL CONSTA [Suspect]
     Route: 030
  4. RISPERDAL CONSTA [Suspect]
     Indication: HALLUCINATION
     Route: 030
  5. RISPERDAL CONSTA [Suspect]
     Route: 030
  6. RISPERDAL CONSTA [Suspect]
     Route: 030
  7. RISPERDAL [Suspect]
     Indication: DELUSION
     Route: 048
  8. RISPERDAL [Suspect]
     Route: 048
  9. RISPERDAL [Suspect]
     Indication: HALLUCINATION
     Route: 048
  10. RISPERDAL [Suspect]
     Route: 048
  11. UNKNOWN MEDICATION [Suspect]
     Indication: PRODUCT USED FOR UNKNOWN INDICATION
     Route: 065
  12. AMLODIPINE [Suspect]
     Indication: HYPERTENSION
     Route: 048
  13. BLOPRESS [Suspect]
     Indication: HYPERTENSION
     Route: 048
  14. LANSOPRAZOLE [Suspect]
     Indication: GASTRITIS
     Route: 048
  15. VASOLAN [Suspect]
     Indication: ARRHYTHMIA
     Route: 048
  16. SIGMART [Suspect]
     Indication: HYPERTENSION
     Route: 048

REACTIONS (4)
  - DEEP VEIN THROMBOSIS [None]
  - HYPOXIA [None]
  - LOSS OF CONSCIOUSNESS [None]
  - PULMONARY VENOUS THROMBOSIS [None]
